FAERS Safety Report 11468453 (Version 2)
Quarter: 2015Q3

REPORT INFORMATION
  Report Type: Spontaneous
  Country: US (occurrence: US)
  Receive Date: 20150903
  Receipt Date: 20150903
  Transmission Date: 20151125
  Serious: Yes (Other)
  Sender: FDA-Public Use
  Company Number: US-ELI_LILLY_AND_COMPANY-US201109002818

PATIENT
  Sex: Male

DRUGS (4)
  1. ASA [Concomitant]
     Active Substance: ASPIRIN
     Dosage: 81 MG, UNK
  2. CYMBALTA [Suspect]
     Active Substance: DULOXETINE HYDROCHLORIDE
     Dosage: 30 MG, BID
  3. ASA [Concomitant]
     Active Substance: ASPIRIN
     Dosage: 81 MG, UNK
  4. CYMBALTA [Suspect]
     Active Substance: DULOXETINE HYDROCHLORIDE
     Dosage: 60 MG, QD

REACTIONS (1)
  - Epistaxis [Recovered/Resolved]
